FAERS Safety Report 6201547-8 (Version None)
Quarter: 2009Q2

REPORT INFORMATION
  Report Type: 
  Country: None (occurrence: None)
  Receive Date: 20090526
  Receipt Date: 20090520
  Transmission Date: 20091009
  Serious: No
  Sender: FDA-Public Use
  Company Number: US-B.I. PHARMACEUTICALS,INC./RIDGEFIELD-2009-BP-05892BP

PATIENT
  Age: 71 Year
  Sex: Male

DRUGS (7)
  1. ATROVENT HFA [Suspect]
     Indication: CHRONIC OBSTRUCTIVE PULMONARY DISEASE
     Dosage: 136MCG
     Route: 055
     Dates: start: 20090301, end: 20090501
  2. LASIX [Concomitant]
  3. PACERONE [Concomitant]
  4. WARFARIN SODIUM [Concomitant]
  5. POTASSIUM CHLORIDE [Concomitant]
  6. COREG [Concomitant]
  7. LEVOTHYROXINE SODIUM [Concomitant]

REACTIONS (3)
  - DRY EYE [None]
  - LACRIMATION INCREASED [None]
  - VISION BLURRED [None]
